FAERS Safety Report 5897010-4 (Version None)
Quarter: 2008Q3

REPORT INFORMATION
  Report Type: 
  Country: None (occurrence: None)
  Receive Date: 20080924
  Receipt Date: 20080205
  Transmission Date: 20090109
  Serious: Yes (Other)
  Sender: FDA-Public Use
  Company Number: US-ASTRAZENECA-2008UW02426

PATIENT
  Age: 47 Year
  Sex: Male

DRUGS (4)
  1. SEROQUEL [Suspect]
     Indication: BIPOLAR I DISORDER
     Dosage: 200 MG TO 800 MG FOR CLOSE TO 2 YEARS
     Route: 048
     Dates: start: 20060101
  2. XANAX [Concomitant]
  3. CYMBALTA [Concomitant]
     Dosage: 30-90 MG
  4. DEPAKOTE [Concomitant]

REACTIONS (2)
  - MALAISE [None]
  - SUICIDAL IDEATION [None]
